FAERS Safety Report 8570717-6 (Version None)
Quarter: 2012Q3

REPORT INFORMATION
  Report Type: 
  Country: None (occurrence: None)
  Receive Date: 20120805
  Receipt Date: 20120504
  Transmission Date: 20120928
  Serious: No
  Sender: FDA-Public Use
  Company Number: US-009507513-2012SP027820

PATIENT

DRUGS (2)
  1. CLARITIN-D 24 HOUR [Suspect]
     Indication: ALLERGY TO ANIMAL
  2. CLARITIN-D 24 HOUR [Suspect]
     Indication: SEASONAL ALLERGY
     Dosage: UNK UNK, QD
     Route: 048
     Dates: start: 20120408

REACTIONS (1)
  - DRUG INEFFECTIVE [None]
